FAERS Safety Report 7130270-0 (Version None)
Quarter: 2010Q4

REPORT INFORMATION
  Report Type: 
  Country: None (occurrence: None)
  Receive Date: 20101116
  Receipt Date: 20101104
  Transmission Date: 20110411
  Serious: Yes (Death, Other)
  Sender: FDA-Public Use
  Company Number: 749247

PATIENT
  Age: 73 Year
  Sex: Female

DRUGS (12)
  1. GENTAMICIN SULFATE [Suspect]
  2. (RITUXIMAB) [Suspect]
     Indication: RHEUMATOID ARTHRITIS
     Dosage: INTRAVENOUS (NOT OTHERWISE SPECIFIED) ;1 G GRAM(S)
     Route: 042
     Dates: start: 20061130, end: 20061130
  3. (RITUXIMAB) [Suspect]
     Indication: RHEUMATOID ARTHRITIS
     Dosage: INTRAVENOUS (NOT OTHERWISE SPECIFIED) ;1 G GRAM(S)
     Route: 042
     Dates: start: 20080422, end: 20080422
  4. (RITUXIMAB) [Suspect]
     Indication: RHEUMATOID ARTHRITIS
     Dosage: INTRAVENOUS (NOT OTHERWISE SPECIFIED) ;1 G GRAM(S)
     Route: 042
     Dates: start: 20090727, end: 20090810
  5. (ALENDRONIC ACID) [Concomitant]
  6. (ADCAL-D3) [Concomitant]
  7. ATENOLOL [Concomitant]
  8. (ETANERCEPT) [Concomitant]
  9. FOLIC ACID [Concomitant]
  10. METHOTREXATE [Concomitant]
  11. (PARACETAMOL) [Concomitant]
  12. PREDNISOLONE [Concomitant]

REACTIONS (18)
  - BACTERIAL SEPSIS [None]
  - CELLULITIS [None]
  - CEREBROVASCULAR ACCIDENT [None]
  - CLOSTRIDIAL INFECTION [None]
  - ESCHERICHIA INFECTION [None]
  - HEPATIC LESION [None]
  - HIATUS HERNIA [None]
  - INCONTINENCE [None]
  - INSOMNIA [None]
  - INTERVERTEBRAL DISCITIS [None]
  - LIVER ABSCESS [None]
  - PARASPINAL ABSCESS [None]
  - PSEUDOMEMBRANOUS COLITIS [None]
  - RASH [None]
  - RHEUMATOID ARTHRITIS [None]
  - SOFT TISSUE INFECTION [None]
  - SPINAL OSTEOARTHRITIS [None]
  - SPLENOMEGALY [None]
